FAERS Safety Report 6211304-4 (Version None)
Quarter: 2009Q2

REPORT INFORMATION
  Report Type: 
  Country: None (occurrence: None)
  Receive Date: 20090528
  Receipt Date: 20090505
  Transmission Date: 20091009
  Serious: Yes (Other)
  Sender: FDA-Public Use
  Company Number: KR-DEXCELPHARM-20090664

PATIENT
  Age: 16 Year
  Sex: Male

DRUGS (1)
  1. CHLORHEXIDINE GLUCONATE [Suspect]
     Dosage: 0.5 % PERCENT

REACTIONS (4)
  - BURKHOLDERIA CEPACIA INFECTION [None]
  - CATHETER RELATED INFECTION [None]
  - NOSOCOMIAL INFECTION [None]
  - PRODUCT CONTAMINATION [None]
